FAERS Safety Report 6909380-6 (Version None)
Quarter: 2010Q3

REPORT INFORMATION
  Report Type: 
  Country: None (occurrence: None)
  Receive Date: 20100803
  Receipt Date: 20100720
  Transmission Date: 20110219
  Serious: Yes (Other)
  Sender: FDA-Public Use
  Company Number: 010520

PATIENT
  Age: 16 Year
  Sex: Female

DRUGS (7)
  1. BUSULFEX [Suspect]
     Indication: STEM CELL TRANSPLANT
     Dosage: 0.8 MG/KG, Q6HR, INTRAVENOUS
     Route: 042
  2. ANTITHYMOCYTE IMMUNOGLOBULIN (ANTITHYMOCYTE IMMUGLOBULIN) [Concomitant]
  3. CYCLOPHOSPHAMIDE [Concomitant]
  4. CYCLOSPORINE [Concomitant]
  5. PREDNISONE [Concomitant]
  6. PHENYTOIN [Concomitant]
  7. FILGRASTIM (FILGRASTIM) [Concomitant]

REACTIONS (4)
  - CHRONIC GRAFT VERSUS HOST DISEASE [None]
  - CYTOMEGALOVIRUS VIRAEMIA [None]
  - DEAFNESS NEUROSENSORY [None]
  - OVARIAN FAILURE [None]
